FAERS Safety Report 22288041 (Version 1)
Quarter: 2023Q2

REPORT INFORMATION
  Report Type: Report from Study
  Country: US (occurrence: US)
  Receive Date: 20230505
  Receipt Date: 20230505
  Transmission Date: 20230722
  Serious: No
  Sender: FDA-Public Use
  Company Number: US-002147023-NVSC2023US102925

PATIENT
  Sex: Male

DRUGS (13)
  1. BETAMETHASONE [Suspect]
     Active Substance: BETAMETHASONE
     Indication: Psoriasis
     Dosage: 0.05 % (AUGMENTED)
     Route: 061
  2. ATORVASTATIN [Suspect]
     Active Substance: ATORVASTATIN
     Indication: Psoriasis
     Dosage: UNK
     Route: 065
  3. NITROGLYCERIN [Suspect]
     Active Substance: NITROGLYCERIN
     Indication: Psoriasis
     Dosage: UNK
     Route: 065
  4. AZITHROMYCIN [Suspect]
     Active Substance: AZITHROMYCIN
     Indication: Psoriasis
     Dosage: 250 MG
     Route: 065
  5. CARVEDILOL [Suspect]
     Active Substance: CARVEDILOL
     Indication: Psoriasis
     Dosage: 25 MG
     Route: 065
  6. TRIAMCINOLONE [Suspect]
     Active Substance: TRIAMCINOLONE
     Indication: Psoriasis
     Dosage: 0.1 % (TRIAMCINOLONE ACETONIDE)
     Route: 061
  7. NYSTATIN [Suspect]
     Active Substance: NYSTATIN
     Indication: Psoriasis
     Dosage: (100,000 UNIT/GRAM)
     Route: 061
  8. HYDROCORTISONE [Suspect]
     Active Substance: HYDROCORTISONE
     Indication: Psoriasis
     Dosage: UNK (HYDROCORTISONE/TMC)
     Route: 065
  9. CLOPIDOGREL [Suspect]
     Active Substance: CLOPIDOGREL BISULFATE
     Indication: Psoriasis
     Dosage: 75 MG
     Route: 065
  10. HYDROCODONE [Suspect]
     Active Substance: HYDROCODONE
     Indication: Psoriasis
     Dosage: UNK (HYDROCODONE-ACETAMINOPHEN)
     Route: 065
  11. LINACLOTIDE [Suspect]
     Active Substance: LINACLOTIDE
     Indication: Psoriasis
     Dosage: UNK
     Route: 065
  12. LISINOPRIL [Suspect]
     Active Substance: LISINOPRIL
     Indication: Psoriasis
     Dosage: 5 MG
     Route: 065
  13. RIVAROXABAN [Suspect]
     Active Substance: RIVAROXABAN
     Indication: Psoriasis
     Dosage: UNK
     Route: 065

REACTIONS (5)
  - Skin discolouration [Unknown]
  - Inflammation [Unknown]
  - Dry skin [Unknown]
  - Erythema [Unknown]
  - Treatment failure [Unknown]
